FAERS Safety Report 19367521 (Version 1)
Quarter: 2021Q2

REPORT INFORMATION
  Report Type: Spontaneous
  Country: ES (occurrence: ES)
  Receive Date: 20210603
  Receipt Date: 20210603
  Transmission Date: 20210717
  Serious: Yes (Other)
  Sender: FDA-Public Use
  Company Number: ES-TEVA-2021-ES-1918394

PATIENT
  Age: 71 Year
  Sex: Male

DRUGS (8)
  1. DUOTRAV [Concomitant]
     Active Substance: TIMOLOL MALEATE\TRAVOPROST
  2. CAPENON 40 MG/10 MG COMPRIMIDOS RECUBIERTOS CON PELICULA , 28 COMPRIMI [Concomitant]
  3. TAMSULOSINA [TAMSULOSIN] [Suspect]
     Active Substance: TAMSULOSIN
     Dosage: 0.4MG,MODIFIED RELEASE CAPSULES
     Route: 048
     Dates: start: 20210313, end: 20210325
  4. OMEPRAZOL 20 MG 28 CAPSULAS [Concomitant]
  5. TRAJENTA 5 MG COMPRIMIDOS RECUBIERTOS CON PELICULA, 30 COMPRIMIDOS [Concomitant]
     Active Substance: LINAGLIPTIN
  6. PRAVAFENIX 40 MG/160 MG CAPSULAS DURAS 30 CAPSULAS [Concomitant]
  7. DAKTARIN CREMA , TUBO CON 40 G [Concomitant]
  8. SIMBRINZA 10MG/ML + 2MG/ML COLIRIO EN SUSPENSION FRASCO DE 8 ML QUE CO [Concomitant]

REACTIONS (1)
  - Epidermolysis [Recovered/Resolved]

NARRATIVE: CASE EVENT DATE: 20210323
